FAERS Safety Report 8021176-3 (Version None)
Quarter: 2011Q4

REPORT INFORMATION
  Report Type: 
  Country: None (occurrence: None)
  Receive Date: 20111221
  Receipt Date: 20111206
  Transmission Date: 20120403
  Serious: Yes (Hospitalization)
  Sender: FDA-Public Use
  Company Number: 2011030462

PATIENT
  Sex: Female
  Weight: 71.6683 kg

DRUGS (14)
  1. PRIVIGEN [Suspect]
     Indication: OPTIC NEURITIS
     Dosage: (50 MG, 3 DAYS EVERY MONTH INTRAVENOUS (NOT OTHERWISE SPECIFIED))
     Route: 042
     Dates: start: 20110122
  2. MULTIVITAMIN (DAILY MULTIVITAMIN) [Concomitant]
  3. PEPCID [Concomitant]
  4. FROVATRIPTAN SUCCINATE [Concomitant]
  5. FROVA [Suspect]
     Indication: MIGRAINE
  6. VITAMIN D [Concomitant]
  7. FAMOTIDINE [Concomitant]
  8. IBUPROFEN [Concomitant]
  9. MIRALAX [Concomitant]
  10. PRIVIGEN [Suspect]
     Indication: OPTIC NEURITIS
     Dosage: 20 GM VIAL
     Dates: start: 20111102, end: 20111104
  11. MAXALT [Suspect]
  12. ACETAMINOPHEN [Concomitant]
  13. NAPROXEN [Concomitant]
  14. PRIVIGEN [Suspect]
     Indication: OPTIC NEURITIS
     Dosage: 10 GM VIAL
     Dates: start: 20111102, end: 20111104

REACTIONS (12)
  - OFF LABEL USE [None]
  - PHOTOSENSITIVITY REACTION [None]
  - GAIT DISTURBANCE [None]
  - OPTIC NEUROPATHY [None]
  - ASTHENIA [None]
  - EYE PAIN [None]
  - THERAPEUTIC RESPONSE DECREASED [None]
  - MIGRAINE [None]
  - ABDOMINAL DISCOMFORT [None]
  - HEADACHE [None]
  - NAUSEA [None]
  - CONCOMITANT DISEASE AGGRAVATED [None]
